FAERS Safety Report 4466338-7 (Version None)
Quarter: 2004Q4

REPORT INFORMATION
  Report Type: 
  Country: None (occurrence: None)
  Receive Date: 20041005
  Receipt Date: 20040928
  Transmission Date: 20050328
  Serious: Yes (Life-Threatening, Hospitalization, Disabling)
  Sender: FDA-Public Use
  Company Number: GB-GLAXOSMITHKLINE-B0346561A

PATIENT
  Age: 44 Year
  Sex: Male
  Weight: 92.73 kg

DRUGS (8)
  1. AVANDIA [Suspect]
     Indication: DIABETES MELLITUS
     Dosage: 1UNIT IN THE MORNING
     Route: 048
     Dates: start: 20020916, end: 20040902
  2. METFORMIN HCL [Concomitant]
     Dosage: 3UNIT PER DAY
     Route: 065
     Dates: start: 19980819
  3. ATORVASTATIN CALCIUM [Concomitant]
     Dosage: 1UNIT AT NIGHT
     Route: 065
     Dates: start: 20040624
  4. FLUVOXAMINE MALEATE [Concomitant]
     Route: 065
     Dates: start: 20040917
  5. BISOPROLOL FUMARATE [Concomitant]
     Dosage: 1UNIT IN THE MORNING
     Route: 065
     Dates: start: 20040920
  6. RAMIPRIL [Concomitant]
     Dosage: 1UNIT TWICE PER DAY
     Route: 065
     Dates: start: 20040920
  7. FUROSEMIDE [Concomitant]
     Dosage: 1UNIT IN THE MORNING
     Route: 065
     Dates: start: 20040920
  8. ALDACTONE [Concomitant]
     Dosage: 1UNIT IN THE MORNING
     Route: 065
     Dates: start: 20040920

REACTIONS (2)
  - DYSPNOEA [None]
  - PULMONARY OEDEMA [None]
